FAERS Safety Report 7600545-7 (Version None)
Quarter: 2011Q2

REPORT INFORMATION
  Report Type: 
  Country: None (occurrence: None)
  Receive Date: 20110629
  Receipt Date: 20110616
  Transmission Date: 20111010
  Serious: Yes (Hospitalization)
  Sender: FDA-Public Use
  Company Number: 2011MA007659

PATIENT
  Age: 63 Year
  Sex: Female

DRUGS (7)
  1. CLONAZEPAM [Concomitant]
  2. GEMFIBROZIL [Concomitant]
  3. VENLAFAXINE [Concomitant]
  4. DICLOFENAC SODIUM [Suspect]
     Indication: PAIN
  5. VALSARTAN [Concomitant]
  6. ATORVASTATIN [Concomitant]
  7. RABEPRAZOLE SODIUM [Concomitant]

REACTIONS (13)
  - ABDOMINAL PAIN LOWER [None]
  - BLOOD IRON INCREASED [None]
  - TRANSFERRIN SATURATION INCREASED [None]
  - IRON BINDING CAPACITY TOTAL DECREASED [None]
  - MICROCYTIC ANAEMIA [None]
  - FATIGUE [None]
  - HAEMOGLOBIN DECREASED [None]
  - HAEMATOCHEZIA [None]
  - GASTROINTESTINAL DISORDER [None]
  - DIZZINESS [None]
  - WEIGHT DECREASED [None]
  - HAEMORRHOIDS [None]
  - LARGE INTESTINAL ULCER [None]
